FAERS Safety Report 17685536 (Version 1)
Quarter: 2020Q2

REPORT INFORMATION
  Report Type: Spontaneous
  Country: US (occurrence: US)
  Receive Date: 20200420
  Receipt Date: 20200420
  Transmission Date: 20200714
  Serious: No
  Sender: FDA-Public Use
  Company Number: US-SA-2020SA102320

PATIENT
  Age: 64 Year
  Sex: Female

DRUGS (1)
  1. DUPIXENT [Suspect]
     Active Substance: DUPILUMAB
     Indication: DERMATITIS ALLERGIC
     Dosage: 150 MG/ML, QOW
     Route: 058
     Dates: start: 20200222

REACTIONS (1)
  - Pruritus [Not Recovered/Not Resolved]

NARRATIVE: CASE EVENT DATE: 20200301
